FAERS Safety Report 6556225-2 (Version None)
Quarter: 2010Q1

REPORT INFORMATION
  Report Type: 
  Country: None (occurrence: None)
  Receive Date: 20100128
  Receipt Date: 20090724
  Transmission Date: 20100710
  Serious: No
  Sender: FDA-Public Use
  Company Number: US-TEVA-203497USA

PATIENT
  Sex: Female

DRUGS (7)
  1. COPAXONE [Suspect]
     Indication: MULTIPLE SCLEROSIS
     Route: 058
     Dates: start: 20090301
  2. DULOXETINE HYDROCHLORIDE [Concomitant]
  3. TRAZODONE [Concomitant]
  4. OMEPRAZOLE [Concomitant]
  5. ALPRAZOLAM [Concomitant]
  6. CETIRIZINE HYDROCHLORIDE [Concomitant]
  7. MOMETASONE FUROATE [Concomitant]

REACTIONS (1)
  - IMMEDIATE POST-INJECTION REACTION [None]
